FAERS Safety Report 4985642-7 (Version None)
Quarter: 2006Q2

REPORT INFORMATION
  Report Type: 
  Country: None (occurrence: None)
  Receive Date: 20060428
  Receipt Date: 20060419
  Transmission Date: 20061013
  Serious: Yes (Hospitalization)
  Sender: FDA-Public Use
  Company Number: PT-JNJFOC-20060404760

PATIENT
  Sex: Female

DRUGS (4)
  1. REMICADE [Suspect]
     Indication: RHEUMATOID ARTHRITIS
     Route: 042
  2. ROFECOXIB [Concomitant]
     Route: 065
  3. PREDNISOLONE [Concomitant]
     Dosage: 5 -10 MG A DAY
     Route: 065
  4. SULFASALAZINE [Concomitant]
     Route: 065

REACTIONS (1)
  - PULMONARY TUBERCULOSIS [None]
